FAERS Safety Report 7124248-0 (Version None)
Quarter: 2010Q4

REPORT INFORMATION
  Report Type: 
  Country: None (occurrence: None)
  Receive Date: 20101126
  Receipt Date: 20101111
  Transmission Date: 20110411
  Serious: Yes (Other)
  Sender: FDA-Public Use
  Company Number: GXKR2010FR12263

PATIENT
  Age: 56 Year
  Sex: Female

DRUGS (5)
  1. RIFAMPICIN [Suspect]
     Dosage: 600 MG, QD
     Dates: end: 20060601
  2. ISONIAZID [Suspect]
     Dosage: 250 MG/DAY
     Dates: end: 20060601
  3. PYRAZINAMIDE [Suspect]
     Dosage: 1500 MG/DAY
     Dates: end: 20060601
  4. ETHAMBUTOL (NGX) [Suspect]
     Dosage: 750 MG/DAY
     Dates: end: 20060601
  5. INFLIXIMAB [Suspect]
     Indication: ANKYLOSING SPONDYLITIS
     Dosage: 5 MG/KG
     Dates: start: 20041101

REACTIONS (7)
  - CHEST PAIN [None]
  - FACE OEDEMA [None]
  - GRANULOMA [None]
  - IMMUNE RECONSTITUTION SYNDROME [None]
  - LYMPHADENECTOMY [None]
  - LYMPHADENOPATHY [None]
  - RESPIRATORY DISTRESS [None]
